FAERS Safety Report 4312928-1 (Version None)
Quarter: 2004Q1

REPORT INFORMATION
  Report Type: 
  Country: None (occurrence: None)
  Receive Date: 20040302
  Receipt Date: 20031209
  Transmission Date: 20041129
  Serious: No
  Sender: FDA-Public Use
  Company Number: 701403

PATIENT
  Age: 47 Year
  Sex: Male

DRUGS (2)
  1. AMEVIVE [Suspect]
     Indication: PSORIASIS
     Dosage: 15 MG QW IM
     Dates: start: 20030919, end: 20031206
  2. AMEVIVE [Suspect]
     Indication: PAIN
     Dosage: 15 MG QW IM
     Dates: start: 20031222

REACTIONS (1)
  - UPPER RESPIRATORY TRACT INFECTION [None]
